FAERS Safety Report 10980153 (Version 1)
Quarter: 2015Q2

REPORT INFORMATION
  Report Type: Spontaneous
  Country: US (occurrence: US)
  Receive Date: 20150402
  Receipt Date: 20150402
  Transmission Date: 20150821
  Serious: No
  Sender: FDA-Public Use
  Company Number: US-GLAXOSMITHKLINE-US2015GSK026479

PATIENT

DRUGS (1)
  1. ANORO ELLIPTA [Suspect]
     Active Substance: UMECLIDINIUM BROMIDE\VILANTEROL TRIFENATATE
     Indication: PRODUCT USED FOR UNKNOWN INDICATION
     Dosage: UNK, U
     Route: 065

REACTIONS (7)
  - Swelling face [Unknown]
  - Dyspnoea [Unknown]
  - Ill-defined disorder [Unknown]
  - Rash [Unknown]
  - Swollen tongue [Unknown]
  - Urticaria [Unknown]
  - Mouth swelling [Unknown]
